FAERS Safety Report 8475620-8 (Version None)
Quarter: 2012Q2

REPORT INFORMATION
  Report Type: 
  Country: None (occurrence: None)
  Receive Date: 20120628
  Receipt Date: 20120620
  Transmission Date: 20120825
  Serious: Yes (Hospitalization)
  Sender: FDA-Public Use
  Company Number: JP-B.I. PHARMACEUTICALS,INC./RIDGEFIELD-2012-BP-11067NB

PATIENT
  Age: 88 Year
  Sex: Female
  Weight: 60 kg

DRUGS (4)
  1. PRADAXA [Suspect]
     Indication: ATRIAL FIBRILLATION
     Dosage: 220 MG
     Route: 065
     Dates: end: 20120614
  2. MEXITIL [Concomitant]
     Dosage: 300 MG
     Route: 065
  3. SIGMART [Concomitant]
     Dosage: 15 MG
     Route: 065
  4. LANSOPRAZOLE [Concomitant]
     Dosage: 15 MG
     Route: 065

REACTIONS (1)
  - CARDIAC FAILURE [None]
